FAERS Safety Report 20383150 (Version 1)
Quarter: 2022Q1

REPORT INFORMATION
  Report Type: Spontaneous
  Country: AU (occurrence: AU)
  Receive Date: 20220127
  Receipt Date: 20220127
  Transmission Date: 20220424
  Serious: No
  Sender: FDA-Public Use
  Company Number: AU-GSKCCFAPAC-Case-01402178_AE-53981

PATIENT
  Age: 10 Year
  Sex: Male
  Weight: 16 kg

DRUGS (1)
  1. SOTROVIMAB [Suspect]
     Active Substance: SOTROVIMAB
     Indication: Coronavirus infection
     Dosage: UNK

REACTIONS (1)
  - Off label use [Unknown]
